FAERS Safety Report 13376511 (Version 3)
Quarter: 2019Q4

REPORT INFORMATION
  Report Type: Spontaneous
  Country: US (occurrence: US)
  Receive Date: 20170328
  Receipt Date: 20191202
  Transmission Date: 20200122
  Serious: Yes (Other)
  Sender: FDA-Public Use
  Company Number: US-PFIZER INC-2017133023

PATIENT
  Age: 73 Year
  Sex: Female

DRUGS (1)
  1. PREMARIN [Suspect]
     Active Substance: ESTROGENS, CONJUGATED
     Indication: VULVOVAGINAL DRYNESS
     Dosage: UNK

REACTIONS (6)
  - Drug ineffective [Unknown]
  - Malaise [Unknown]
  - Oral fungal infection [Unknown]
  - Expired product administered [Unknown]
  - Gait disturbance [Unknown]
  - Deafness neurosensory [Unknown]
